FAERS Safety Report 23521028 (Version 1)
Quarter: 2024Q1

REPORT INFORMATION
  Report Type: Spontaneous
  Country: SE (occurrence: SE)
  Receive Date: 20240214
  Receipt Date: 20240214
  Transmission Date: 20240410
  Serious: Yes (Other)
  Sender: FDA-Public Use
  Company Number: None

PATIENT
  Sex: Female
  Weight: 62 kg

DRUGS (4)
  1. AMLODIPINE [Suspect]
     Active Substance: AMLODIPINE BESYLATE
     Indication: Hypertension
     Route: 048
     Dates: start: 2020, end: 20230916
  2. ENALAPRIL MALEATE [Concomitant]
     Active Substance: ENALAPRIL MALEATE
     Indication: Product used for unknown indication
     Dosage: 1 TABLET DAILY
     Route: 048
     Dates: start: 2015
  3. ATARAX [Concomitant]
     Active Substance: HYDROXYZINE HYDROCHLORIDE
     Indication: Product used for unknown indication
     Dosage: 1/2 TO 1 TABLE AT NIGHT IF NEEDED
     Route: 048
     Dates: start: 2018
  4. MELATONIN [Concomitant]
     Active Substance: MELATONIN
     Indication: Product used for unknown indication
     Dosage: 1 TABLET AT NIGHT IF NECESSARY
     Route: 048
     Dates: start: 2019

REACTIONS (10)
  - Alopecia [Recovering/Resolving]
  - Rash [Recovering/Resolving]
  - Defaecation disorder [Recovering/Resolving]
  - Mood swings [Recovering/Resolving]
  - Pruritus [Recovering/Resolving]
  - Skin discolouration [Recovering/Resolving]
  - Hyperhidrosis [Recovering/Resolving]
  - Libido decreased [Recovering/Resolving]
  - Transient acantholytic dermatosis [Recovering/Resolving]
  - Depression [Recovering/Resolving]

NARRATIVE: CASE EVENT DATE: 20200101
